FAERS Safety Report 5637610-X (Version None)
Quarter: 2008Q1

REPORT INFORMATION
  Report Type: 
  Country: None (occurrence: None)
  Receive Date: 20080225
  Receipt Date: 20080215
  Transmission Date: 20080703
  Serious: Yes (Hospitalization, Disabling, Other)
  Sender: FDA-Public Use
  Company Number: JP-PFIZER INC-2007093223

PATIENT
  Sex: Male
  Weight: 17 kg

DRUGS (4)
  1. GENOTROPIN [Suspect]
     Indication: GROWTH RETARDATION
     Route: 058
     Dates: start: 20031101, end: 20070715
  2. GENOTROPIN [Suspect]
     Route: 058
  3. AMOXICILLIN TRIHYDRATE [Concomitant]
     Route: 048
  4. KEFRAL [Concomitant]
     Route: 048

REACTIONS (2)
  - CORONARY ARTERY ANEURYSM [None]
  - KAWASAKI'S DISEASE [None]
